FAERS Safety Report 7450908-8 (Version None)
Quarter: 2011Q2

REPORT INFORMATION
  Report Type: 
  Country: None (occurrence: None)
  Receive Date: 20110422
  Receipt Date: 20110411
  Transmission Date: 20111010
  Serious: Yes (Hospitalization)
  Sender: FDA-Public Use
  Company Number: 891460

PATIENT
  Age: 53 Year
  Sex: Male

DRUGS (6)
  1. METRONIDAZOLE [Suspect]
     Indication: BRAIN ABSCESS
     Dosage: 500 MG EVERY 8H,
     Dates: start: 20070901
  2. METRONIDAZOLE [Suspect]
     Indication: ENDOCARDITIS
     Dosage: 500 MG EVERY 8H,
     Dates: start: 20070901
  3. METRONIDAZOLE [Suspect]
     Indication: BRAIN ABSCESS
     Dosage: 500 MG EVERY 8H,
     Dates: start: 20070901
  4. METRONIDAZOLE [Suspect]
     Indication: ENDOCARDITIS
     Dosage: 500 MG EVERY 8H,
     Dates: start: 20070901
  5. CEFTRIAXONE [Concomitant]
  6. VANCOMYCIN HYDROCHLORIDE [Concomitant]

REACTIONS (9)
  - PEPTOSTREPTOCOCCUS TEST POSITIVE [None]
  - HEMIPARESIS [None]
  - NYSTAGMUS [None]
  - NEUROTOXICITY [None]
  - ENCEPHALOPATHY [None]
  - GAZE PALSY [None]
  - POLYNEUROPATHY [None]
  - BONE MARROW FAILURE [None]
  - DYSARTHRIA [None]
